FAERS Safety Report 20108252 (Version 1)
Quarter: 2021Q4

REPORT INFORMATION
  Report Type: Spontaneous
  Country: US (occurrence: US)
  Receive Date: 20211124
  Receipt Date: 20211124
  Transmission Date: 20220303
  Serious: No
  Sender: FDA-Public Use
  Company Number: US-drreddys-SPO/USA/21/0143929

PATIENT
  Age: 73 Year
  Sex: Male
  Weight: 81 kg

DRUGS (1)
  1. MOXIFLOXACIN [Suspect]
     Active Substance: MOXIFLOXACIN
     Indication: Urinary tract infection
     Dosage: MORNING
     Dates: start: 20211111, end: 20211111

REACTIONS (6)
  - Gait disturbance [Unknown]
  - Dizziness [Unknown]
  - Hypoaesthesia [Unknown]
  - Joint swelling [Unknown]
  - Product use in unapproved indication [Unknown]
  - Product quality issue [Unknown]
